FAERS Safety Report 5621978-4 (Version None)
Quarter: 2008Q1

REPORT INFORMATION
  Report Type: 
  Country: None (occurrence: None)
  Receive Date: 20080211
  Receipt Date: 20080201
  Transmission Date: 20080703
  Serious: Yes (Other)
  Sender: FDA-Public Use
  Company Number: B0507128A

PATIENT
  Age: 63 Year
  Sex: Male
  Weight: 90 kg

DRUGS (3)
  1. SERETIDE DISKUS [Suspect]
     Dosage: 1PUFF TWICE PER DAY
     Route: 055
  2. PREDNISOLONE [Concomitant]
     Route: 048
  3. SALBUTAMOLI [Concomitant]
     Route: 055

REACTIONS (4)
  - ASTHMA [None]
  - DEVICE INEFFECTIVE [None]
  - DRUG INEFFECTIVE [None]
  - PHARMACEUTICAL PRODUCT COMPLAINT [None]
